FAERS Safety Report 9503341 (Version 4)
Quarter: 2014Q1

REPORT INFORMATION
  Report Type: Report from Study
  Country: US (occurrence: US)
  Receive Date: 20130906
  Receipt Date: 20140204
  Transmission Date: 20141002
  Serious: Yes (Hospitalization)
  Sender: FDA-Public Use
  Company Number: US-PURDUE-USA-2013-0105803

PATIENT
  Age: 54 Year
  Sex: Male

DRUGS (2)
  1. OXYCONTIN (NDA 22-272) [Suspect]
     Indication: NECK PAIN
     Dosage: 80 MG, Q12H
     Route: 048
     Dates: start: 20121106, end: 201306
  2. OXYCONTIN (NDA 22-272) [Suspect]
     Indication: DYSTONIA
     Dosage: 80 MG, Q12H
     Route: 048
     Dates: start: 20131108

REACTIONS (2)
  - Diverticulitis [Not Recovered/Not Resolved]
  - Enterovesical fistula [Recovered/Resolved]
